FAERS Safety Report 19289501 (Version 1)
Quarter: 2021Q2

REPORT INFORMATION
  Report Type: Spontaneous
  Country: None (occurrence: None)
  Receive Date: 20210522
  Receipt Date: 20210522
  Transmission Date: 20210717
  Serious: Yes (Hospitalization, Other)
  Sender: FDA-Public Use
  Company Number: VISTAPHARM, INC.-VER202105-001264

PATIENT
  Age: 40 Year
  Sex: Male

DRUGS (6)
  1. MYCOPHENOLATE MOFETIL, USP [Suspect]
     Active Substance: MYCOPHENOLATE MOFETIL
     Indication: IMMUNOSUPPRESSION
     Dosage: UNKNOWN
  2. CEPHALOSPORIN [Concomitant]
     Active Substance: UNSPECIFIED INGREDIENT
     Indication: PROPHYLAXIS
  3. CEPHALOSPORIN [Concomitant]
     Active Substance: UNSPECIFIED INGREDIENT
     Indication: ANTIBIOTIC PROPHYLAXIS
     Dosage: UNKNOWN
  4. CEPHALOSPORIN [Concomitant]
     Active Substance: UNSPECIFIED INGREDIENT
     Indication: PNEUMONIA
  5. BASILIXIMAB [Concomitant]
     Active Substance: BASILIXIMAB
     Indication: IMMUNOSUPPRESSION
     Dosage: UNKNOWN
  6. TACROLIMUS. [Suspect]
     Active Substance: TACROLIMUS
     Indication: IMMUNOSUPPRESSION
     Dosage: UNKNOWN

REACTIONS (2)
  - Haemophagocytic lymphohistiocytosis [Recovered/Resolved]
  - Cytomegalovirus hepatitis [Recovered/Resolved]
